FAERS Safety Report 13692450 (Version 1)
Quarter: 2017Q2

REPORT INFORMATION
  Report Type: Report from Study
  Country: US (occurrence: US)
  Receive Date: 20170627
  Receipt Date: 20170627
  Transmission Date: 20170830
  Serious: Yes (Death, Hospitalization, Other)
  Sender: FDA-Public Use
  Company Number: US-GILEAD-2017-0270703

PATIENT
  Age: 64 Year
  Sex: Male
  Weight: 103.86 kg

DRUGS (16)
  1. AMBRISENTAN [Suspect]
     Active Substance: AMBRISENTAN
     Indication: PRODUCT USED FOR UNKNOWN INDICATION
     Dosage: 5 MG, UNK
     Route: 065
  2. WARFARIN [Concomitant]
     Active Substance: WARFARIN
  3. TRACLEER [Concomitant]
     Active Substance: BOSENTAN
  4. FERROUS SULFATE. [Concomitant]
     Active Substance: FERROUS SULFATE
  5. MIRAPEX [Concomitant]
     Active Substance: PRAMIPEXOLE DIHYDROCHLORIDE
  6. ACETAMINOPHEN. [Concomitant]
     Active Substance: ACETAMINOPHEN
  7. REMODULIN [Concomitant]
     Active Substance: TREPROSTINIL
  8. ULTRAM [Concomitant]
     Active Substance: TRAMADOL HYDROCHLORIDE
  9. LIPITOR [Concomitant]
     Active Substance: ATORVASTATIN CALCIUM
  10. MAGNESIUM OXIDE. [Concomitant]
     Active Substance: MAGNESIUM OXIDE
  11. MIRALAX [Concomitant]
     Active Substance: POLYETHYLENE GLYCOL 3350
  12. FEBUXOSTAT. [Concomitant]
     Active Substance: FEBUXOSTAT
  13. TADALAFIL [Concomitant]
     Active Substance: TADALAFIL
  14. PRILOSEC [Concomitant]
     Active Substance: OMEPRAZOLE MAGNESIUM
  15. VITAMIN E                          /00110501/ [Concomitant]
     Active Substance: TOCOPHEROL
  16. VITAMIN C [Concomitant]
     Active Substance: ASCORBIC ACID

REACTIONS (5)
  - Catheterisation cardiac [Unknown]
  - Dizziness [Unknown]
  - Asthenia [Unknown]
  - Vision blurred [Unknown]
  - Pulmonary hypertension [Fatal]

NARRATIVE: CASE EVENT DATE: 20170327
